FAERS Safety Report 4771673-9 (Version None)
Quarter: 2005Q3

REPORT INFORMATION
  Report Type: 
  Country: None (occurrence: None)
  Receive Date: 20050916
  Receipt Date: 20050629
  Transmission Date: 20060218
  Serious: Yes (Other)
  Sender: FDA-Public Use
  Company Number: JP-BRISTOL-MYERS SQUIBB COMPANY-13024872

PATIENT
  Age: 59 Year
  Sex: Female
  Weight: 59 kg

DRUGS (4)
  1. UFT [Suspect]
     Indication: BREAST CANCER
     Dosage: DOSE: 1 CAP X2/DAY, 05NOV-10DEC03 DISCONTINUED
     Route: 048
     Dates: start: 20030910, end: 20031104
  2. CYCLOPHOSPHAMIDE [Suspect]
     Indication: BREAST CANCER
     Route: 042
     Dates: start: 20030327, end: 20030819
  3. DOXORUBICIN HCL [Suspect]
     Indication: BREAST CANCER
     Route: 042
     Dates: start: 20030327, end: 20030819
  4. MUCOSTA [Concomitant]
     Route: 048
     Dates: start: 20030910, end: 20031210

REACTIONS (3)
  - BLOOD CHOLESTEROL INCREASED [None]
  - BLOOD TRIGLYCERIDES INCREASED [None]
  - SKIN DISCOLOURATION [None]
